FAERS Safety Report 10240273 (Version 1)
Quarter: 2014Q2

REPORT INFORMATION
  Report Type: Spontaneous
  Country: IT (occurrence: IT)
  Receive Date: 20140617
  Receipt Date: 20140617
  Transmission Date: 20141212
  Serious: Yes (Hospitalization)
  Sender: FDA-Public Use
  Company Number: PHHY2014IT072387

PATIENT
  Age: 36 Year
  Sex: Male

DRUGS (4)
  1. TEGRETOL [Suspect]
     Indication: SELF-INJURIOUS IDEATION
     Dosage: 1 DF, DAILY
     Route: 048
     Dates: start: 20140422, end: 20140422
  2. SEREPRILE [Suspect]
     Indication: SELF-INJURIOUS IDEATION
     Dosage: 1 DF, DAILY
     Route: 048
     Dates: start: 20140422, end: 20140422
  3. ANTABUSE D [Concomitant]
     Dosage: UNK UKN, UNK
  4. DELORAZEPAM [Concomitant]
     Dosage: 1 DF, UNK

REACTIONS (3)
  - Sopor [Recovering/Resolving]
  - Drug abuse [Recovering/Resolving]
  - Agitation [Recovering/Resolving]
